FAERS Safety Report 8435467-5 (Version None)
Quarter: 2012Q2

REPORT INFORMATION
  Report Type: 
  Country: None (occurrence: None)
  Receive Date: 20120614
  Receipt Date: 20120608
  Transmission Date: 20120825
  Serious: Yes (Hospitalization)
  Sender: FDA-Public Use
  Company Number: BR-PFIZER INC-2012139676

PATIENT
  Age: 86 Year
  Sex: Female

DRUGS (2)
  1. LYRICA [Suspect]
     Indication: PAIN
     Dosage: UNK
     Route: 048
  2. PRESSAT [Concomitant]
     Indication: HYPERTENSION
     Dosage: UNK

REACTIONS (1)
  - GASTROINTESTINAL DISORDER [None]
